FAERS Safety Report 17943665 (Version 2)
Quarter: 2020Q3

REPORT INFORMATION
  Report Type: Spontaneous
  Country: US (occurrence: US)
  Receive Date: 20200625
  Receipt Date: 20200824
  Transmission Date: 20201103
  Serious: No
  Sender: FDA-Public Use
  Company Number: US-PFIZER INC-2020240107

PATIENT
  Age: 73 Year
  Sex: Female
  Weight: 93.44 kg

DRUGS (2)
  1. GENOTROPIN [Suspect]
     Active Substance: SOMATROPIN
     Indication: HYPOPITUITARISM
     Dosage: 0.6 MG
     Dates: start: 2000
  2. GENOTROPIN [Suspect]
     Active Substance: SOMATROPIN
     Dosage: 0.6 MG (12MG; 0.6MG, ADMINISTERED TO (THIGHS) LEGS AND UPPER ARMS ALTERNATING)

REACTIONS (1)
  - Reaction to preservatives [Unknown]
